FAERS Safety Report 9255711 (Version 1)
Quarter: 2013Q2

REPORT INFORMATION
  Report Type: Spontaneous
  Country: US (occurrence: US)
  Receive Date: 20130425
  Receipt Date: 20130425
  Transmission Date: 20140414
  Serious: No
  Sender: FDA-Public Use
  Company Number: US-009507513-1304USA011194

PATIENT
  Age: 58 Year
  Sex: Female

DRUGS (4)
  1. DULERA [Suspect]
     Indication: ASTHMA
     Dosage: 2 PUFF, QAM
     Route: 055
     Dates: start: 201204
  2. DULERA [Suspect]
     Dosage: 1 PUFF, QPM
     Route: 055
     Dates: start: 201204
  3. VENTOLIN (ALBUTEROL SULFATE) [Concomitant]
  4. SINGULAIR [Concomitant]
     Route: 048

REACTIONS (3)
  - Incorrect dose administered [Unknown]
  - Device malfunction [Unknown]
  - No adverse event [Unknown]
